FAERS Safety Report 10778613 (Version 3)
Quarter: 2015Q2

REPORT INFORMATION
  Report Type: Report from Study
  Country: CA (occurrence: CA)
  Receive Date: 20150210
  Receipt Date: 20150619
  Transmission Date: 20150821
  Serious: Yes (Hospitalization, Other)
  Sender: FDA-Public Use
  Company Number: CA-ROCHE-1525769

PATIENT
  Age: 78 Year
  Sex: Female

DRUGS (5)
  1. OMEGA-3 ACIDS [Concomitant]
     Active Substance: OMEGA-3 FATTY ACIDS
  2. AVASTIN [Suspect]
     Active Substance: BEVACIZUMAB
     Indication: COLORECTAL CANCER
     Route: 042
     Dates: start: 20141001, end: 20150512
  3. VITAMIN C [Concomitant]
     Active Substance: ASCORBIC ACID
  4. RAMIPRIL. [Concomitant]
     Active Substance: RAMIPRIL
  5. ADVIL [Concomitant]
     Active Substance: IBUPROFEN

REACTIONS (11)
  - Urinary tract infection [Unknown]
  - Abdominal discomfort [Unknown]
  - Chills [Unknown]
  - Hypoaesthesia [Unknown]
  - Drug ineffective [Unknown]
  - Chills [Unknown]
  - Epistaxis [Not Recovered/Not Resolved]
  - Fatigue [Unknown]
  - Fatigue [Not Recovered/Not Resolved]
  - Hypertension [Not Recovered/Not Resolved]
  - Pyrexia [Unknown]

NARRATIVE: CASE EVENT DATE: 2015
